FAERS Safety Report 25593730 (Version 1)
Quarter: 2025Q3

REPORT INFORMATION
  Report Type: Report from Study
  Country: GB (occurrence: GB)
  Receive Date: 20250722
  Receipt Date: 20250722
  Transmission Date: 20251020
  Serious: Yes (Other)
  Sender: ABBVIE
  Company Number: GB-ABBVIE-6359458

PATIENT
  Age: 75 Year
  Sex: Female

DRUGS (1)
  1. HUMIRA [Suspect]
     Active Substance: ADALIMUMAB
     Indication: Rheumatoid arthritis
     Dosage: MISSED TWO DOSES
     Route: 058
     Dates: end: 202506

REACTIONS (5)
  - Suicidal ideation [Unknown]
  - Pain in extremity [Not Recovered/Not Resolved]
  - Tooth extraction [Unknown]
  - Impaired quality of life [Unknown]
  - Malaise [Unknown]

NARRATIVE: CASE EVENT DATE: 20250101
